FAERS Safety Report 5787092-2 (Version None)
Quarter: 2008Q2

REPORT INFORMATION
  Report Type: 
  Country: None (occurrence: None)
  Receive Date: 20080623
  Receipt Date: 20080623
  Transmission Date: 20081010
  Serious: Yes (Hospitalization)
  Sender: FDA-Public Use
  Company Number: None

PATIENT
  Sex: Female
  Weight: 89.36 kg

DRUGS (1)
  1. AZITHROMYCIN [Suspect]
     Indication: BRONCHITIS
     Dosage: PO
     Route: 048

REACTIONS (4)
  - CARDIAC ARREST [None]
  - LOSS OF CONSCIOUSNESS [None]
  - SHOCK [None]
  - VENTRICULAR FIBRILLATION [None]
